FAERS Safety Report 6604551-0 (Version None)
Quarter: 2010Q1

REPORT INFORMATION
  Report Type: 
  Country: None (occurrence: None)
  Receive Date: 20100226
  Receipt Date: 20091120
  Transmission Date: 20100710
  Serious: No
  Sender: FDA-Public Use
  Company Number: A0822118A

PATIENT
  Age: 23 Year
  Sex: Female

DRUGS (5)
  1. LAMOTRIGINE [Suspect]
     Indication: BIPOLAR DISORDER
     Dosage: 100MG PER DAY
     Route: 048
     Dates: start: 20090601
  2. SEROQUEL [Concomitant]
  3. ALBUTEROL [Concomitant]
  4. LEVSIN [Concomitant]
  5. METHADONE HCL [Concomitant]

REACTIONS (1)
  - DYSPHAGIA [None]
